FAERS Safety Report 10399584 (Version 1)
Quarter: 2014Q1

REPORT INFORMATION
  Report Type: Spontaneous
  Country: US (occurrence: None)
  Receive Date: 20130815
  Receipt Date: 20130815
  Transmission Date: 20141002
  Serious: Yes (Other)
  Sender: FDA-Public Use
  Company Number: ADR-2012-01526

PATIENT
  Sex: Female

DRUGS (3)
  1. BACLOFEN INTRATHECAL [Suspect]
     Indication: MUSCLE SPASTICITY
  2. BACLOFEN INTRATHECAL [Suspect]
     Indication: MULTIPLE SCLEROSIS
  3. ORAL BACLOFEN [Concomitant]

REACTIONS (4)
  - Muscle spasms [None]
  - Weight decreased [None]
  - Fatigue [None]
  - Muscle spasticity [None]
